FAERS Safety Report 4335053-2 (Version None)
Quarter: 2004Q2

REPORT INFORMATION
  Report Type: 
  Country: None (occurrence: None)
  Receive Date: 20040408
  Receipt Date: 20040325
  Transmission Date: 20050107
  Serious: Yes (Other)
  Sender: FDA-Public Use
  Company Number: FR-GLAXOSMITHKLINE-B0328452A

PATIENT
  Age: 68 Year
  Sex: Male
  Weight: 62 kg

DRUGS (4)
  1. DEROXAT [Suspect]
     Indication: MAJOR DEPRESSION
     Dosage: 40MG PER DAY
     Route: 048
     Dates: start: 20040301
  2. AMLODIPINE [Concomitant]
     Dates: start: 20040301
  3. EUPRESSYL [Concomitant]
     Dates: start: 20040301
  4. NORSET [Concomitant]
     Dates: start: 20040301

REACTIONS (3)
  - MUSCULOSKELETAL STIFFNESS [None]
  - POSTURE ABNORMAL [None]
  - STUPOR [None]
